FAERS Safety Report 4471817-2 (Version None)
Quarter: 2004Q4

REPORT INFORMATION
  Report Type: 
  Country: None (occurrence: None)
  Receive Date: 20041006
  Receipt Date: 20040924
  Transmission Date: 20050328
  Serious: Yes (Hospitalization)
  Sender: FDA-Public Use
  Company Number: 2004212974US

PATIENT
  Age: 61 Year
  Sex: Male
  Weight: 103.9 kg

DRUGS (6)
  1. CAMPTOSAR [Suspect]
     Indication: COLON CANCER METASTATIC
     Dosage: 699 MG, EVERY 21 DAYS, CYCLE 5, IV
     Route: 042
     Dates: start: 20031216, end: 20040309
  2. PEMETREXED () [Suspect]
     Indication: COLON CANCER METASTATIC
     Dosage: 1165 MG, CYCLIC, IV
     Route: 042
     Dates: start: 20031216, end: 20040309
  3. EMEND [Concomitant]
  4. DECADRON [Concomitant]
  5. FOLIC ACID [Concomitant]
  6. VITAMIN B-12 [Concomitant]

REACTIONS (2)
  - MALLORY-WEISS SYNDROME [None]
  - VOMITING [None]
